FAERS Safety Report 8935237 (Version 2)
Quarter: 2013Q1

REPORT INFORMATION
  Report Type: Report from Study
  Country: US (occurrence: US)
  Receive Date: 20121129
  Receipt Date: 20130311
  Transmission Date: 20140127
  Serious: Yes (Other)
  Sender: FDA-Public Use
  Company Number: US-ABBOTT-12P-163-1010799-00

PATIENT
  Sex: Female
  Weight: 69.01 kg

DRUGS (9)
  1. HUMIRA [Suspect]
     Route: 058
     Dates: start: 2009, end: 201101
  2. UNKNOWN MEDICATIONS [Concomitant]
     Indication: HYPERTENSION
  3. UNKNOWN MEDICATION [Concomitant]
     Indication: BLOOD CHOLESTEROL INCREASED
  4. ELAVIL [Concomitant]
     Indication: DEPRESSION
  5. IRON [Concomitant]
     Indication: ANAEMIA
  6. UNKNOWN BINDERS [Concomitant]
     Indication: DYSPEPSIA
  7. MOTRIN [Concomitant]
     Indication: RHEUMATOID ARTHRITIS
  8. VICODIN [Concomitant]
     Indication: RHEUMATOID ARTHRITIS
     Dosage: 5/500MG AS REQUIRED
  9. ZOLOFT [Concomitant]
     Indication: PRODUCT USED FOR UNKNOWN INDICATION

REACTIONS (2)
  - Renal failure chronic [Not Recovered/Not Resolved]
  - Diabetes mellitus inadequate control [Unknown]
